FAERS Safety Report 14180108 (Version 1)
Quarter: 2017Q4

REPORT INFORMATION
  Report Type: Spontaneous
  Country: TW (occurrence: TW)
  Receive Date: 20171110
  Receipt Date: 20171110
  Transmission Date: 20180321
  Serious: Yes (Other)
  Sender: FDA-Public Use
  Company Number: TW-009507513-1711TWN003956

PATIENT
  Age: 56 Year
  Sex: Male

DRUGS (2)
  1. DAPTOMYCIN. [Suspect]
     Active Substance: DAPTOMYCIN
     Indication: STAPHYLOCOCCAL INFECTION
     Dosage: 500 MG, QD
     Route: 041
  2. TYGACIL [Concomitant]
     Active Substance: TIGECYCLINE
     Dosage: 50 MG/VIAL
     Route: 041
     Dates: start: 20161021, end: 20161111

REACTIONS (3)
  - Pain in extremity [Unknown]
  - Pyrexia [Unknown]
  - Peripheral swelling [Recovering/Resolving]

NARRATIVE: CASE EVENT DATE: 20161018
